FAERS Safety Report 5131623-2 (Version None)
Quarter: 2006Q4

REPORT INFORMATION
  Report Type: 
  Country: None (occurrence: None)
  Receive Date: 20061016
  Receipt Date: 20061002
  Transmission Date: 20070319
  Serious: Yes (Hospitalization)
  Sender: FDA-Public Use
  Company Number: HQWYE442402OCT06

PATIENT
  Age: 58 Year
  Sex: Male

DRUGS (5)
  1. CORDARONE [Suspect]
     Indication: ATRIAL FIBRILLATION
     Dosage: 1200 MG 1X PER 1 DAY; ORAL
     Route: 048
     Dates: start: 20021001, end: 20021101
  2. CORDARONE [Suspect]
     Dosage: 800 MG 1X PER 1 DAY; ORAL(SEE IMAGE)
     Route: 048
     Dates: start: 20021101, end: 20030101
  3. CORDARONE [Suspect]
     Dosage: 800 MG 1X PER 1 DAY; ORAL(SEE IMAGE)
     Route: 048
     Dates: start: 20030101, end: 20030301
  4. CORDARONE [Suspect]
     Dosage: 800 MG 1X PER 1 DAY; ORAL(SEE IMAGE)
     Route: 048
     Dates: start: 20030301, end: 20030601
  5. CORDARONE [Suspect]
     Dosage: 800 MG 1X PER 1 DAY; ORAL(SEE IMAGE)
     Route: 048
     Dates: start: 20030601, end: 20040227

REACTIONS (4)
  - INFECTION PROTOZOAL [None]
  - LUNG INFECTION [None]
  - PNEUMONITIS [None]
  - TRICHOMONIASIS [None]
